FAERS Safety Report 10085594 (Version 2)
Quarter: 2014Q2

REPORT INFORMATION
  Report Type: Spontaneous
  Country: DE (occurrence: DE)
  Receive Date: 20140418
  Receipt Date: 20140418
  Transmission Date: 20141212
  Serious: Yes (Hospitalization, Other)
  Sender: FDA-Public Use
  Company Number: DE-BRISTOL-MYERS SQUIBB COMPANY-20557005

PATIENT
  Age: 66 Year
  Sex: Male
  Weight: 97 kg

DRUGS (4)
  1. ELIQUIS [Suspect]
     Indication: CEREBROVASCULAR ACCIDENT PROPHYLAXIS
     Dosage: DOSE REDUCED TO 2.5MG
     Dates: start: 201311
  2. CLOPIDOGREL BISULFATE [Suspect]
     Dates: start: 201311, end: 2014
  3. LOSARTAN [Concomitant]
  4. AMARYL [Concomitant]

REACTIONS (3)
  - Haemoptysis [Recovered/Resolved]
  - Gastrooesophageal reflux disease [Unknown]
  - Duodenal ulcer [Unknown]
